FAERS Safety Report 21602123 (Version 4)
Quarter: 2023Q1

REPORT INFORMATION
  Report Type: Spontaneous
  Country: JP (occurrence: JP)
  Receive Date: 20221116
  Receipt Date: 20230331
  Transmission Date: 20230417
  Serious: Yes (Other)
  Sender: FDA-Public Use
  Company Number: JP-CHUGAI-2022045090

PATIENT
  Age: 86 Year
  Sex: Male

DRUGS (8)
  1. TECENTRIQ [Suspect]
     Active Substance: ATEZOLIZUMAB
     Indication: Hepatocellular carcinoma
     Route: 041
     Dates: start: 20210824, end: 20210914
  2. TECENTRIQ [Suspect]
     Active Substance: ATEZOLIZUMAB
     Route: 041
     Dates: start: 20211019, end: 20211019
  3. TECENTRIQ [Suspect]
     Active Substance: ATEZOLIZUMAB
     Route: 041
     Dates: start: 20220915
  4. AVASTIN [Suspect]
     Active Substance: BEVACIZUMAB
     Indication: Hepatocellular carcinoma
     Route: 041
     Dates: start: 20210824, end: 20210914
  5. AVASTIN [Suspect]
     Active Substance: BEVACIZUMAB
     Route: 041
     Dates: start: 20211019, end: 20211019
  6. AVASTIN [Suspect]
     Active Substance: BEVACIZUMAB
     Route: 041
     Dates: start: 20220915, end: 20221117
  7. AZILSARTAN KAMEDOXOMIL [Concomitant]
     Active Substance: AZILSARTAN KAMEDOXOMIL
     Indication: Hypertension
     Dosage: UNK
     Route: 048
     Dates: start: 20220801
  8. NIFEDIPINE [Concomitant]
     Active Substance: NIFEDIPINE
     Indication: Hypertension
     Dosage: UNK
     Route: 048
     Dates: start: 20220801

REACTIONS (1)
  - Cardiac failure [Recovered/Resolved]

NARRATIVE: CASE EVENT DATE: 20211019
